FAERS Safety Report 7943849-0 (Version None)
Quarter: 2011Q4

REPORT INFORMATION
  Report Type: 
  Country: None (occurrence: None)
  Receive Date: 20111128
  Receipt Date: 20111115
  Transmission Date: 20120403
  Serious: Yes (Other)
  Sender: FDA-Public Use
  Company Number: DE-CELGENEUS-062-50794-11112211

PATIENT
  Age: 68 Year
  Sex: Male
  Weight: 80 kg

DRUGS (6)
  1. ETOPOSIDE [Suspect]
     Route: 065
  2. FORTECORTIN [Suspect]
     Dosage: 8 MILLIGRAM
     Route: 041
     Dates: start: 20111111, end: 20111113
  3. CYTARABINE [Suspect]
     Route: 065
     Dates: start: 20111110, end: 20111113
  4. IDARUBICIN HCL [Suspect]
     Route: 065
  5. VIDAZA [Suspect]
     Route: 065
  6. LENOGRASTIM [Suspect]
     Route: 065

REACTIONS (1)
  - DIABETES MELLITUS [None]
